FAERS Safety Report 11828000 (Version 3)
Quarter: 2017Q3

REPORT INFORMATION
  Report Type: Spontaneous
  Country: BR (occurrence: BR)
  Receive Date: 20151211
  Receipt Date: 20170720
  Transmission Date: 20171127
  Serious: Yes (Hospitalization, Other)
  Sender: FDA-Public Use
  Company Number: BR-UCBSA-2015034816

PATIENT
  Age: 75 Year
  Sex: Female
  Weight: 70 kg

DRUGS (18)
  1. CIMZIA [Suspect]
     Active Substance: CERTOLIZUMAB PEGOL
     Indication: RHEUMATOID ARTHRITIS
     Dosage: 400 MG, UNK
     Dates: start: 201507, end: 20151022
  2. CIMZIA [Suspect]
     Active Substance: CERTOLIZUMAB PEGOL
     Dosage: 400 MG, EV 30 DAYS
     Dates: start: 2015
  3. PRADAXA [Concomitant]
     Active Substance: DABIGATRAN ETEXILATE MESYLATE
     Indication: THROMBOSIS
     Dosage: 2 DF, ONCE DAILY (QD)
     Route: 048
     Dates: start: 201706
  4. XARELTO [Concomitant]
     Active Substance: RIVAROXABAN
     Indication: THROMBOSIS
     Dosage: 15 MG, ONCE DAILY (QD)
     Route: 048
     Dates: start: 20151030, end: 20151108
  5. LOSARTAN. [Concomitant]
     Active Substance: LOSARTAN
     Indication: HYPERTENSION
     Dosage: 160 MG, ONCE DAILY (QD)
     Route: 048
     Dates: start: 2016
  6. CELESTAMINE [Concomitant]
     Active Substance: BETAMETHASONE\DEXCHLORPHENIRAMINE MALEATE
     Indication: PNEUMONIA
     Dosage: UNK, 2X/DAY (BID)
     Route: 048
     Dates: start: 20151004, end: 20151014
  7. HYOSCINE [Concomitant]
     Active Substance: SCOPOLAMINE
     Indication: HYPERTENSION
     Dosage: 450 MG, ONCE DAILY (QD)
     Route: 048
     Dates: start: 201506
  8. PREDSIM [Concomitant]
     Active Substance: PREDNISOLONE
     Indication: RHEUMATOID ARTHRITIS
     Dosage: 5 MG, UNK
     Route: 048
     Dates: start: 201506
  9. AZITHROMYCIN ANHYDROUS. [Concomitant]
     Active Substance: AZITHROMYCIN ANHYDROUS
     Indication: PNEUMONIA
     Dosage: 500 MG, ONCE DAILY (QD)
     Route: 048
     Dates: start: 20151004, end: 20151120
  10. ACETYLCYSTEINE. [Concomitant]
     Active Substance: ACETYLCYSTEINE
     Indication: BRONCHIECTASIS
     Dosage: 600 MG, UNK
     Route: 048
     Dates: start: 2014
  11. SYMBICORT [Concomitant]
     Active Substance: BUDESONIDE\FORMOTEROL FUMARATE DIHYDRATE
     Indication: DYSPNOEA
     Dosage: 200 MG, ONCE DAILY (QD)
     Dates: start: 2014
  12. SIMVASTATIN. [Concomitant]
     Active Substance: SIMVASTATIN
     Indication: CAROTID ARTERY DISEASE
     Dosage: 10 MG, ONCE DAILY (QD)
     Route: 048
  13. VANAIR [Concomitant]
     Active Substance: BENZOYL PEROXIDE\SULFUR
     Indication: DYSPNOEA
     Dosage: 100 MG, ONCE DAILY (QD)
     Route: 048
     Dates: start: 2014
  14. XARELTO [Concomitant]
     Active Substance: RIVAROXABAN
     Dosage: 20 MG, ONCE DAILY (QD)
     Route: 048
     Dates: start: 20151109
  15. LEVOFLOXACIN. [Concomitant]
     Active Substance: LEVOFLOXACIN
     Indication: PNEUMONIA
     Dosage: 750 MG, ONCE DAILY (QD)
     Route: 048
     Dates: start: 20151004, end: 20151009
  16. HYDROCHLOROTHIAZIDE. [Concomitant]
     Active Substance: HYDROCHLOROTHIAZIDE
     Indication: HYPERTENSION
     Dosage: 12.5 MG, ONCE DAILY (QD)
     Route: 048
     Dates: start: 201506
  17. METHOTREXATE. [Concomitant]
     Active Substance: METHOTREXATE
     Indication: RHEUMATOID ARTHRITIS
     Dosage: 2.5 MG, UNK
     Route: 048
  18. PREDNISONE. [Concomitant]
     Active Substance: PREDNISONE
     Indication: RHEUMATOID ARTHRITIS
     Dosage: 15 MG, ONCE DAILY (QD)
     Route: 048
     Dates: start: 2016, end: 201706

REACTIONS (6)
  - Atypical pneumonia [Unknown]
  - Pulmonary embolism [Not Recovered/Not Resolved]
  - Thrombosis [Not Recovered/Not Resolved]
  - Pneumonia [Recovered/Resolved]
  - Drug dose omission [Unknown]
  - Viral infection [Not Recovered/Not Resolved]

NARRATIVE: CASE EVENT DATE: 20151001
